FAERS Safety Report 6986153-X (Version None)
Quarter: 2010Q3

REPORT INFORMATION
  Report Type: 
  Country: None (occurrence: None)
  Receive Date: 20100915
  Receipt Date: 20090826
  Transmission Date: 20110219
  Serious: No
  Sender: FDA-Public Use
  Company Number: US-WYE-H09632009

PATIENT
  Sex: Female
  Weight: 67.65 kg

DRUGS (2)
  1. PRISTIQ [Suspect]
     Indication: HOT FLUSH
     Route: 048
     Dates: start: 20090401
  2. PRISTIQ [Suspect]
     Indication: FEELING ABNORMAL

REACTIONS (3)
  - ABDOMINAL DISTENSION [None]
  - CONDITION AGGRAVATED [None]
  - CONSTIPATION [None]
